FAERS Safety Report 11633117 (Version 1)
Quarter: 2015Q4

REPORT INFORMATION
  Report Type: Spontaneous
  Country: KR (occurrence: KR)
  Receive Date: 20151015
  Receipt Date: 20151015
  Transmission Date: 20160304
  Serious: Yes (Hospitalization)
  Sender: FDA-Public Use
  Company Number: KR-AMGEN-KORCT2015107909

PATIENT
  Age: 47 Year
  Sex: Female
  Weight: 65.6 kg

DRUGS (24)
  1. G-LASTA [Suspect]
     Active Substance: PEGFILGRASTIM
     Dosage: 6 MG, 1X/3WEEKS
     Route: 058
     Dates: start: 20150808, end: 20150808
  2. G-LASTA [Suspect]
     Active Substance: PEGFILGRASTIM
     Dosage: 6 MG, 1X/3WEEKS
     Route: 058
     Dates: start: 20150829, end: 20150829
  3. CYCLOPHOSPHAMIDE. [Concomitant]
     Active Substance: CYCLOPHOSPHAMIDE
     Dosage: 1245 MG, UNK
     Route: 042
     Dates: start: 20150714, end: 20150714
  4. RITUXIMAB [Concomitant]
     Active Substance: RITUXIMAB
     Dosage: 611.25 MG, UNK
     Route: 042
     Dates: start: 20150828, end: 20150828
  5. VINCRISTINE [Concomitant]
     Active Substance: VINCRISTINE
     Dosage: 2 MG, UNK
     Route: 042
     Dates: start: 20150714, end: 20150714
  6. VINCRISTINE [Concomitant]
     Active Substance: VINCRISTINE
     Dosage: 2 MG, UNK
     Route: 042
     Dates: start: 20150828, end: 20150828
  7. PREDNISOLONE. [Concomitant]
     Active Substance: PREDNISOLONE
     Dosage: 60 MG, UNK
     Route: 048
     Dates: start: 20150714, end: 20150714
  8. CYCLOPHOSPHAMIDE. [Concomitant]
     Active Substance: CYCLOPHOSPHAMIDE
     Dosage: 1222.5 MG, UNK
     Route: 042
     Dates: start: 20150828, end: 20150828
  9. DOXORUBICIN [Concomitant]
     Active Substance: DOXORUBICIN
     Dosage: 83 MG, UNK
     Route: 042
     Dates: start: 20150807, end: 20150807
  10. PREDNISOLONE. [Concomitant]
     Active Substance: PREDNISOLONE
     Dosage: 60 MG, UNK
     Route: 048
     Dates: start: 20150924, end: 20150924
  11. G-LASTA [Suspect]
     Active Substance: PEGFILGRASTIM
     Indication: FEBRILE NEUTROPENIA
     Dosage: 6 MG, 1X/3WEEKS
     Route: 058
     Dates: start: 20150715, end: 20150715
  12. G-LASTA [Suspect]
     Active Substance: PEGFILGRASTIM
     Dosage: 6 MG, 1X/3WEEKS
     Route: 058
     Dates: start: 20150925, end: 20150925
  13. RITUXIMAB [Concomitant]
     Active Substance: RITUXIMAB
     Dosage: 622.5 MG, UNK
     Route: 042
     Dates: start: 20150807, end: 20150807
  14. DOXORUBICIN [Concomitant]
     Active Substance: DOXORUBICIN
     Dosage: 50 MG, UNK
     Route: 042
     Dates: start: 20150714, end: 20150714
  15. RITUXIMAB [Concomitant]
     Active Substance: RITUXIMAB
     Dosage: 622.5 MG, UNK
     Route: 042
     Dates: start: 20150714, end: 20150714
  16. CYCLOPHOSPHAMIDE. [Concomitant]
     Active Substance: CYCLOPHOSPHAMIDE
     Dosage: 1222.5 MG, UNK
     Route: 042
     Dates: start: 20150924, end: 20150924
  17. DOXORUBICIN [Concomitant]
     Active Substance: DOXORUBICIN
     Dosage: 81.5 MG, UNK
     Route: 042
     Dates: start: 20150924, end: 20150924
  18. VINCRISTINE [Concomitant]
     Active Substance: VINCRISTINE
     Dosage: 2 MG, UNK
     Route: 042
     Dates: start: 20150924, end: 20150924
  19. PREDNISOLONE. [Concomitant]
     Active Substance: PREDNISOLONE
     Dosage: 60 MG, UNK
     Route: 048
     Dates: start: 20150807, end: 20150807
  20. CYCLOPHOSPHAMIDE. [Concomitant]
     Active Substance: CYCLOPHOSPHAMIDE
     Dosage: 1245 MG, UNK
     Route: 042
     Dates: start: 20150807, end: 20150807
  21. VINCRISTINE [Concomitant]
     Active Substance: VINCRISTINE
     Dosage: 2 MG, UNK
     Route: 042
     Dates: start: 20150807, end: 20150807
  22. PREDNISOLONE. [Concomitant]
     Active Substance: PREDNISOLONE
     Dosage: 60 MG, UNK
     Route: 048
     Dates: start: 20150828, end: 20150828
  23. RITUXIMAB [Concomitant]
     Active Substance: RITUXIMAB
     Dosage: 611.25 G, UNK
     Route: 042
     Dates: start: 20150924, end: 20150924
  24. DOXORUBICIN [Concomitant]
     Active Substance: DOXORUBICIN
     Dosage: 81.5 MG, UNK
     Route: 042
     Dates: start: 20150828, end: 20150828

REACTIONS (1)
  - Neutropenia [Recovered/Resolved]

NARRATIVE: CASE EVENT DATE: 20151001
